FAERS Safety Report 9577120 (Version 2)
Quarter: 2013Q4

REPORT INFORMATION
  Report Type: Spontaneous
  Country: US (occurrence: US)
  Receive Date: 20131001
  Receipt Date: 20131001
  Transmission Date: 20140711
  Serious: No
  Sender: FDA-Public Use
  Company Number: US-AMGEN-USASP2012084066

PATIENT
  Age: 54 Year
  Sex: Male
  Weight: 111.11 kg

DRUGS (11)
  1. ENBREL [Suspect]
     Indication: RHEUMATOID ARTHRITIS
     Dosage: 50 MG, QWK
     Route: 058
  2. ENBREL [Suspect]
     Indication: PSORIATIC ARTHROPATHY
  3. ASPIRIN [Concomitant]
     Dosage: 81 MG, UNK CHW
     Route: 048
  4. STOOL SOFTENER [Concomitant]
     Dosage: 100 MG, UNK
     Route: 048
  5. OXYCONTIN [Concomitant]
     Dosage: 10 MG, UNK CR
     Route: 048
  6. RAMIPRIL [Concomitant]
     Dosage: 10 MG, UNK
     Route: 048
  7. XANAX [Concomitant]
     Dosage: 2 MG, UNK
     Route: 048
  8. LEFLUNOMIDE [Concomitant]
     Dosage: 10 MG, UNK
     Route: 048
  9. ZIPSOR [Concomitant]
     Dosage: 25 MG, UNK
     Route: 048
  10. ANDROGEL [Concomitant]
     Dosage: 1 %, UNK PUMP
  11. FLOVENT [Concomitant]
     Dosage: 44 MCG/AC

REACTIONS (4)
  - Paraesthesia [Unknown]
  - Fatigue [Unknown]
  - Nasal congestion [Unknown]
  - Asthma [Unknown]
